FAERS Safety Report 8556153-7 (Version None)
Quarter: 2012Q3

REPORT INFORMATION
  Report Type: 
  Country: None (occurrence: None)
  Receive Date: 20120801
  Receipt Date: 20120724
  Transmission Date: 20120928
  Serious: Yes (Hospitalization)
  Sender: FDA-Public Use
  Company Number: JP-009507513-1207JPN011041

PATIENT

DRUGS (3)
  1. TELAVIC [Suspect]
     Route: 048
     Dates: start: 20120709
  2. PEG-INTRON [Suspect]
     Route: 058
     Dates: start: 20120709
  3. REBETOL [Suspect]
     Route: 048
     Dates: start: 20120709

REACTIONS (1)
  - NEUTROPHIL COUNT DECREASED [None]
